FAERS Safety Report 6129098-X (Version None)
Quarter: 2009Q1

REPORT INFORMATION
  Report Type: 
  Country: None (occurrence: None)
  Receive Date: 20090324
  Receipt Date: 20090312
  Transmission Date: 20090719
  Serious: Yes (Other)
  Sender: FDA-Public Use
  Company Number: DE-JNJFOC-20090106985

PATIENT
  Age: 59 Year
  Sex: Male

DRUGS (2)
  1. REMICADE [Suspect]
     Route: 042
  2. REMICADE [Suspect]
     Indication: ANKYLOSING SPONDYLITIS
     Dosage: THERAPY FOR 8 YEARS  EVERY 6 TO 8 WEEKS
     Route: 042

REACTIONS (3)
  - ANTINUCLEAR ANTIBODY POSITIVE [None]
  - DRUG INEFFECTIVE [None]
  - SYNOVITIS [None]
